FAERS Safety Report 7723330-4 (Version None)
Quarter: 2011Q3

REPORT INFORMATION
  Report Type: 
  Country: None (occurrence: None)
  Receive Date: 20110901
  Receipt Date: 20110901
  Transmission Date: 20111222
  Serious: Yes (Other)
  Sender: FDA-Public Use
  Company Number: None

PATIENT
  Age: 64 Year
  Sex: Female
  Weight: 81.646 kg

DRUGS (1)
  1. SPIRONOLACTONE [Suspect]
     Indication: HYPERALDOSTERONISM
     Dosage: 50 MG
     Route: 048
     Dates: start: 20090501, end: 20110701

REACTIONS (3)
  - BREAST CANCER [None]
  - PROGESTERONE RECEPTOR ASSAY POSITIVE [None]
  - OESTROGEN RECEPTOR ASSAY POSITIVE [None]
